FAERS Safety Report 7949573-2 (Version None)
Quarter: 2011Q4

REPORT INFORMATION
  Report Type: 
  Country: None (occurrence: None)
  Receive Date: 20111130
  Receipt Date: 20111122
  Transmission Date: 20120403
  Serious: Yes (Life-Threatening, Hospitalization, Other)
  Sender: FDA-Public Use
  Company Number: US-BAYER-2011-044964

PATIENT
  Age: 45 Year
  Sex: Female
  Weight: 81.633 kg

DRUGS (4)
  1. YAZ [Suspect]
     Indication: CONTRACEPTION
     Dosage: UNK
     Route: 048
     Dates: start: 20080101, end: 20100101
  2. LEXAPRO [Concomitant]
     Dosage: 20 MG, QD
     Route: 048
     Dates: start: 20090101
  3. ALBUTEROL SULFATE [Concomitant]
     Dosage: 2 PUFF(S), QD, 109 MCG/ACT
     Route: 055
  4. LIPITOR [Concomitant]
     Dosage: 80 MG, QD
     Route: 048
     Dates: start: 20000101

REACTIONS (11)
  - ANHEDONIA [None]
  - FEAR [None]
  - PULMONARY EMBOLISM [None]
  - INTRACARDIAC THROMBUS [None]
  - ANXIETY [None]
  - AMNESIA [None]
  - DEPRESSION [None]
  - INJURY [None]
  - PAIN [None]
  - MENTAL DISORDER [None]
  - EMOTIONAL DISTRESS [None]
